FAERS Safety Report 7624151-3 (Version None)
Quarter: 2011Q3

REPORT INFORMATION
  Report Type: 
  Country: None (occurrence: None)
  Receive Date: 20110720
  Receipt Date: 20110720
  Transmission Date: 20111222
  Serious: Yes (Other)
  Sender: FDA-Public Use
  Company Number: None

PATIENT
  Age: 52 Year
  Sex: Male
  Weight: 92.986 kg

DRUGS (1)
  1. NEOSPORIN [Suspect]
     Indication: ULCER
     Dosage: ONCE EVERY OTHER DAY
     Route: 003
     Dates: start: 20110705, end: 20110717

REACTIONS (2)
  - RASH PRURITIC [None]
  - BURNING SENSATION [None]
